FAERS Safety Report 9336452 (Version 3)
Quarter: 2014Q4

REPORT INFORMATION
  Report Type: Spontaneous
  Country: JP (occurrence: JP)
  Receive Date: 20130607
  Receipt Date: 20141215
  Transmission Date: 20150529
  Serious: Yes (Hospitalization, Other)
  Sender: FDA-Public Use
  Company Number: JP-BAYER-2013-067225

PATIENT
  Age: 31 Year
  Sex: Female

DRUGS (3)
  1. HYDRALAZINE HYDROCHLORIDE. [Concomitant]
     Active Substance: HYDRALAZINE HYDROCHLORIDE
     Indication: GESTATIONAL HYPERTENSION
     Dosage: UNK
     Dates: start: 2009
  2. ADALAT-L [Suspect]
     Active Substance: NIFEDIPINE
     Indication: GESTATIONAL HYPERTENSION
     Dosage: UNK FROM GESTATION WEEK 24
     Route: 048
     Dates: start: 2009
  3. METHYLDOPA. [Concomitant]
     Active Substance: METHYLDOPA
     Indication: GESTATIONAL HYPERTENSION
     Dosage: UNK
     Route: 048
     Dates: start: 2009

REACTIONS (6)
  - Caesarean section [None]
  - Adrenal adenoma [None]
  - Pre-eclampsia [Recovered/Resolved]
  - Drug ineffective [Recovered/Resolved]
  - Exposure during pregnancy [None]
  - Primary hyperaldosteronism [None]

NARRATIVE: CASE EVENT DATE: 201202
